FAERS Safety Report 14378232 (Version 1)
Quarter: 2018Q1

REPORT INFORMATION
  Report Type: Spontaneous
  Country: CA (occurrence: CA)
  Receive Date: 20180111
  Receipt Date: 20180111
  Transmission Date: 20180509
  Serious: Yes (Death)
  Sender: FDA-Public Use
  Company Number: CA-ACTELION-A-US2018-165340

PATIENT
  Age: 77 Year
  Sex: Female

DRUGS (11)
  1. FUROSEMIDE. [Concomitant]
     Active Substance: FUROSEMIDE
  2. CANDESARTAN. [Concomitant]
     Active Substance: CANDESARTAN
  3. RABEPRAZOLE [Concomitant]
     Active Substance: RABEPRAZOLE
  4. SULFASALAZINE. [Concomitant]
     Active Substance: SULFASALAZINE
  5. TRACLEER [Suspect]
     Active Substance: BOSENTAN
     Indication: PULMONARY ARTERIAL HYPERTENSION
     Dosage: 125 MG, BID
     Route: 048
     Dates: start: 20150922
  6. ADCIRCA [Concomitant]
     Active Substance: TADALAFIL
  7. ATROVENT [Concomitant]
     Active Substance: IPRATROPIUM BROMIDE
  8. RAMIPRIL. [Concomitant]
     Active Substance: RAMIPRIL
  9. METHOTREXATE. [Concomitant]
     Active Substance: METHOTREXATE
  10. HYDROCHLOROTHIAZIDE. [Concomitant]
     Active Substance: HYDROCHLOROTHIAZIDE
  11. APO-FOLIC [Concomitant]
     Active Substance: FOLIC ACID

REACTIONS (1)
  - Death [Fatal]
